FAERS Safety Report 21468907 (Version 1)
Quarter: 2022Q4

REPORT INFORMATION
  Report Type: Report from Study
  Country: US (occurrence: US)
  Receive Date: 20221018
  Receipt Date: 20221018
  Transmission Date: 20230113
  Serious: No
  Sender: FDA-Public Use
  Company Number: US-ABBVIE-4152089

PATIENT
  Sex: Male

DRUGS (24)
  1. HUMIRA [Suspect]
     Active Substance: ADALIMUMAB
     Indication: Psoriatic arthropathy
     Dosage: CITRATE FREE?LAST ADMINISTRATION DATE WAS SEP 2022.
     Route: 058
     Dates: start: 20220906
  2. HUMIRA [Suspect]
     Active Substance: ADALIMUMAB
     Indication: Psoriatic arthropathy
     Dosage: CITRATE FREE
     Route: 058
     Dates: start: 20220909
  3. NITROGLYCERIN [Concomitant]
     Active Substance: NITROGLYCERIN
     Indication: Product used for unknown indication
  4. 200 mg Quetiapine fumarate [Concomitant]
     Indication: Product used for unknown indication
  5. 40 mg Pantoprazole [Concomitant]
     Indication: Product used for unknown indication
  6. 0.4 mg Tamsulosin HCL [Concomitant]
     Indication: Product used for unknown indication
  7. 10 mg Amlodipine besylate [Concomitant]
     Indication: Product used for unknown indication
  8. QVAR REDIHALER [Concomitant]
     Active Substance: BECLOMETHASONE DIPROPIONATE
     Indication: Product used for unknown indication
     Dosage: AC
  9. TRULICITY [Concomitant]
     Active Substance: DULAGLUTIDE
     Indication: Product used for unknown indication
     Dosage: SOP 3MG/0.5ML
  10. 25 mg Amitriptyline HCL [Concomitant]
     Indication: Product used for unknown indication
  11. 2.5 mg Methotrexate [Concomitant]
     Indication: Product used for unknown indication
  12. 40 mg Famotidine [Concomitant]
     Indication: Product used for unknown indication
  13. IBUPROFEN [Concomitant]
     Active Substance: IBUPROFEN
     Indication: Product used for unknown indication
  14. 25 mg Jardiance [Concomitant]
     Indication: Product used for unknown indication
  15. ASPIRIN [Concomitant]
     Active Substance: ASPIRIN
     Indication: Product used for unknown indication
  16. PROAIR HFA [Concomitant]
     Active Substance: ALBUTEROL SULFATE
     Indication: Product used for unknown indication
     Dosage: AER 108
  17. HYDROCODONE [Concomitant]
     Active Substance: HYDROCODONE
     Indication: Product used for unknown indication
     Dosage: 10 TO 325MG
  18. 600 mg Gemfibrozil [Concomitant]
     Indication: Product used for unknown indication
  19. 1 mg Folic acid [Concomitant]
     Indication: Product used for unknown indication
  20. 325 mg Acetaminophen [Concomitant]
     Indication: Product used for unknown indication
  21. 75 mg Clopidogrel, Tablets [Concomitant]
     Indication: Product used for unknown indication
     Route: 048
  22. 20 mg Rosuvastatin [Concomitant]
     Indication: Product used for unknown indication
     Route: 048
  23. 20 mg Tadalafil [Concomitant]
     Indication: Product used for unknown indication
     Route: 048
  24. LACTULOSE [Concomitant]
     Active Substance: LACTULOSE
     Indication: Product used for unknown indication
     Dosage: SOLUTION 20GM/30ML

REACTIONS (6)
  - Chest pain [Recovered/Resolved]
  - Fall [Recovering/Resolving]
  - Drug ineffective [Unknown]
  - Dizziness [Recovering/Resolving]
  - Limb injury [Unknown]
  - Ligament sprain [Unknown]

NARRATIVE: CASE EVENT DATE: 20220101
